FAERS Safety Report 9685193 (Version 1)
Quarter: 2013Q4

REPORT INFORMATION
  Report Type: Spontaneous
  Country: US (occurrence: US)
  Receive Date: 20131113
  Receipt Date: 20131113
  Transmission Date: 20140711
  Serious: Yes (Other)
  Sender: FDA-Public Use
  Company Number: US-AMGEN-USASP2013079442

PATIENT
  Sex: Male

DRUGS (2)
  1. XGEVA [Suspect]
     Indication: PRODUCT USED FOR UNKNOWN INDICATION
     Dosage: UNK UNK, QMO
     Route: 065
  2. VOTRIENT [Concomitant]
     Dosage: UNK UNK, QMO

REACTIONS (16)
  - Pneumonia [Recovering/Resolving]
  - Renal impairment [Recovering/Resolving]
  - Cardiac disorder [Recovering/Resolving]
  - Syncope [Recovering/Resolving]
  - Oral pain [Recovering/Resolving]
  - Speech disorder [Unknown]
  - Pharyngeal oedema [Recovering/Resolving]
  - Insomnia [Recovering/Resolving]
  - Activities of daily living impaired [Recovering/Resolving]
  - Skin discolouration [Recovered/Resolved]
  - Blood pressure decreased [Recovering/Resolving]
  - Dehydration [Recovering/Resolving]
  - Heart rate increased [Recovered/Resolved]
  - Confusional state [Recovering/Resolving]
  - Candida infection [Recovering/Resolving]
  - Fatigue [Recovering/Resolving]
